FAERS Safety Report 13463767 (Version 1)
Quarter: 2017Q2

REPORT INFORMATION
  Report Type: Spontaneous
  Country: US (occurrence: US)
  Receive Date: 20170420
  Receipt Date: 20170420
  Transmission Date: 20170830
  Serious: Yes (Hospitalization, Other)
  Sender: FDA-Public Use
  Company Number: US-ROCHE-662537

PATIENT
  Age: 14 Year
  Sex: Male
  Weight: 52.2 kg

DRUGS (3)
  1. ACCUTANE [Suspect]
     Active Substance: ISOTRETINOIN
     Indication: ACNE
     Dosage: MISSED 3 WEEKS OF THERAPY BETWEEN JUN AND SEP 2002
     Route: 065
     Dates: start: 20020321, end: 200211
  2. ACCUTANE [Suspect]
     Active Substance: ISOTRETINOIN
     Route: 065
     Dates: start: 20040610, end: 20041215
  3. DOXYCYCLINE. [Concomitant]
     Active Substance: DOXYCYCLINE
     Indication: ACNE
     Route: 065

REACTIONS (14)
  - Nasal dryness [Recovered/Resolved]
  - Blood glucose increased [Recovered/Resolved]
  - Inflammatory bowel disease [Unknown]
  - Pruritus [Recovered/Resolved]
  - Eye irritation [Recovered/Resolved]
  - Skin exfoliation [Recovered/Resolved]
  - Alanine aminotransferase decreased [Unknown]
  - Dry skin [Recovered/Resolved]
  - Colitis ulcerative [Unknown]
  - Epistaxis [Recovered/Resolved]
  - Haemoglobin decreased [Recovered/Resolved]
  - Sunburn [Recovered/Resolved]
  - Chapped lips [Unknown]
  - Dry mouth [Recovered/Resolved]

NARRATIVE: CASE EVENT DATE: 20020404
